FAERS Safety Report 7283112-7 (Version None)
Quarter: 2011Q1

REPORT INFORMATION
  Report Type: 
  Country: None (occurrence: None)
  Receive Date: 20110209
  Receipt Date: 20100702
  Transmission Date: 20110831
  Serious: No
  Sender: FDA-Public Use
  Company Number: A0868410A

PATIENT
  Age: 42 Year
  Sex: Female

DRUGS (2)
  1. LEVOTHYROXINE SODIUM [Concomitant]
  2. PAROXETINE HCL [Suspect]
     Dosage: 12.5MG PER DAY
     Route: 048
     Dates: start: 20100101

REACTIONS (5)
  - DRUG INEFFECTIVE [None]
  - ASTHENIA [None]
  - HEADACHE [None]
  - APATHY [None]
  - FEELING ABNORMAL [None]
